FAERS Safety Report 16192692 (Version 1)
Quarter: 2019Q2

REPORT INFORMATION
  Report Type: Spontaneous
  Country: US (occurrence: US)
  Receive Date: 20190412
  Receipt Date: 20190412
  Transmission Date: 20190711
  Serious: No
  Sender: FDA-Public Use
  Company Number: US-009507513-1904USA004651

PATIENT

DRUGS (1)
  1. STERILE DILUENT (WATER) [Suspect]
     Active Substance: WATER
     Dosage: TOATAL DAILY DOSE: 1 DOSE
     Dates: start: 20190408

REACTIONS (2)
  - Product storage error [Unknown]
  - No adverse event [Unknown]

NARRATIVE: CASE EVENT DATE: 20190408
